FAERS Safety Report 5474675-2 (Version None)
Quarter: 2007Q4

REPORT INFORMATION
  Report Type: 
  Country: None (occurrence: None)
  Receive Date: 20071002
  Receipt Date: 20070927
  Transmission Date: 20080405
  Serious: Yes (Hospitalization, Other)
  Sender: FDA-Public Use
  Company Number: US-BRISTOL-MYERS SQUIBB COMPANY-13922398

PATIENT
  Age: 65 Year
  Sex: Male

DRUGS (5)
  1. IXABEPILONE [Suspect]
     Indication: PANCREATIC CARCINOMA METASTATIC
     Route: 042
     Dates: start: 20070919
  2. CETUXIMAB [Suspect]
     Indication: PANCREATIC CARCINOMA METASTATIC
     Route: 042
     Dates: start: 20070919
  3. REGLAN [Concomitant]
     Dates: start: 20070919
  4. MEGACE [Concomitant]
     Dates: start: 20070924
  5. SENOKOT [Concomitant]
     Dates: start: 20070922

REACTIONS (2)
  - FEBRILE NEUTROPENIA [None]
  - INTERNATIONAL NORMALISED RATIO INCREASED [None]
